FAERS Safety Report 11323800 (Version 3)
Quarter: 2015Q4

REPORT INFORMATION
  Report Type: Spontaneous
  Country: US (occurrence: US)
  Receive Date: 20150730
  Receipt Date: 20151118
  Transmission Date: 20160304
  Serious: Yes (Hospitalization, Other)
  Sender: FDA-Public Use
  Company Number: US-009507513-1507USA013302

PATIENT
  Sex: Female
  Weight: 108.84 kg

DRUGS (4)
  1. VICTOZA [Suspect]
     Active Substance: LIRAGLUTIDE
     Indication: TYPE 2 DIABETES MELLITUS
     Dosage: UNK, UNKNOWN
     Route: 065
     Dates: start: 2011, end: 2014
  2. JANUVIA [Suspect]
     Active Substance: SITAGLIPTIN PHOSPHATE
     Indication: TYPE 2 DIABETES MELLITUS
     Dosage: 100 MG, QD
     Route: 048
     Dates: start: 20121127, end: 2014
  3. ASPIRIN. [Concomitant]
     Active Substance: ASPIRIN
     Indication: THROMBOSIS
     Dosage: UNK, UNKNOWN
     Route: 048
     Dates: start: 1971
  4. NEXIUM [Concomitant]
     Active Substance: ESOMEPRAZOLE MAGNESIUM
     Indication: GASTROOESOPHAGEAL REFLUX DISEASE
     Dosage: 40 MG, UNKNOWN
     Route: 048
     Dates: start: 2010, end: 2014

REACTIONS (32)
  - Dysuria [Unknown]
  - Arthropathy [Unknown]
  - Pancreatic duct dilatation [Unknown]
  - Back pain [Unknown]
  - Lymphadenopathy [Unknown]
  - Pneumobilia [Unknown]
  - Lung neoplasm malignant [Unknown]
  - Gallbladder disorder [Recovered/Resolved]
  - Anxiety [Unknown]
  - Cholelithiasis [Unknown]
  - Biliary dilatation [Unknown]
  - Adenocarcinoma pancreas [Unknown]
  - Essential hypertension [Unknown]
  - Acute sinusitis [Unknown]
  - Abdominal pain upper [Unknown]
  - Hysterectomy [Unknown]
  - Type V hyperlipidaemia [Unknown]
  - Hyperuricaemia [Unknown]
  - Intervertebral disc degeneration [Unknown]
  - Jaundice [Unknown]
  - Seroma [Unknown]
  - Intestinal obstruction [Unknown]
  - Cystitis [Unknown]
  - Kidney fibrosis [Unknown]
  - Pulmonary mass [Unknown]
  - Restless legs syndrome [Unknown]
  - Sleep apnoea syndrome [Unknown]
  - Insomnia [Unknown]
  - Pruritus [Unknown]
  - Vascular calcification [Unknown]
  - Hiatus hernia [Unknown]
  - Nausea [Unknown]

NARRATIVE: CASE EVENT DATE: 2014
